FAERS Safety Report 6203116-2 (Version None)
Quarter: 2009Q2

REPORT INFORMATION
  Report Type: 
  Country: None (occurrence: None)
  Receive Date: 20090527
  Receipt Date: 20090521
  Transmission Date: 20091009
  Serious: Yes (Death, Other)
  Sender: FDA-Public Use
  Company Number: US-JNJFOC-20090505962

PATIENT
  Age: 43 Year
  Sex: Male

DRUGS (3)
  1. RISPERDAL CONSTA [Suspect]
     Indication: SCHIZOPHRENIA
     Route: 030
  2. ATIVAN [Concomitant]
     Route: 048
  3. ARTANE [Concomitant]
     Route: 048

REACTIONS (5)
  - BRADYCARDIA [None]
  - HAEMORRHAGE INTRACRANIAL [None]
  - INTRACRANIAL ANEURYSM [None]
  - MENTAL STATUS CHANGES [None]
  - PANCREATITIS [None]
